FAERS Safety Report 7913831-8 (Version None)
Quarter: 2011Q4

REPORT INFORMATION
  Report Type: 
  Country: None (occurrence: None)
  Receive Date: 20111115
  Receipt Date: 20111111
  Transmission Date: 20120403
  Serious: Yes (Death, Other)
  Sender: FDA-Public Use
  Company Number: KR-JNJFOC-20111104746

PATIENT

DRUGS (2)
  1. ZOLPIDEM TARTRATE [Concomitant]
     Route: 048
  2. TOPAMAX [Suspect]
     Indication: CONVULSION
     Route: 048
     Dates: start: 20110101

REACTIONS (2)
  - DEPRESSED MOOD [None]
  - COMPLETED SUICIDE [None]
